FAERS Safety Report 9526945 (Version 1)
Quarter: 2013Q3

REPORT INFORMATION
  Report Type: Spontaneous
  Country: GB (occurrence: GB)
  Receive Date: 20130916
  Receipt Date: 20130916
  Transmission Date: 20140515
  Serious: Yes (Hospitalization)
  Sender: FDA-Public Use
  Company Number: GB-BAUSCH-BL-2013-004988

PATIENT
  Age: 57 Year
  Sex: Male
  Weight: 74.4 kg

DRUGS (5)
  1. DEXAMETHASONE [Suspect]
     Indication: PLASMA CELL MYELOMA
     Dosage: 1 /1 DAYS
     Route: 048
     Dates: start: 20130507, end: 20130528
  2. DOXORUBICIN HYDROCHLORIDE [Suspect]
     Indication: PLASMA CELL MYELOMA
     Dosage: 1 /1DYS
     Dates: start: 20130507
  3. BORTEZOMIB [Suspect]
     Indication: PLASMA CELL MYELOMA
     Dosage: 1 /1DAYS
     Route: 058
     Dates: start: 20130507, end: 20130514
  4. HEPARIN [Concomitant]
  5. WARFARIN [Concomitant]
     Dates: end: 20130528

REACTIONS (2)
  - Sepsis [Recovered/Resolved]
  - Upper gastrointestinal haemorrhage [Recovered/Resolved]
